FAERS Safety Report 9363863 (Version 3)
Quarter: 2014Q2

REPORT INFORMATION
  Report Type: Spontaneous
  Country: US (occurrence: US)
  Receive Date: 20130624
  Receipt Date: 20140410
  Transmission Date: 20141212
  Serious: Yes (Other)
  Sender: FDA-Public Use
  Company Number: US-PFIZER INC-2013185662

PATIENT
  Age: 79 Year
  Sex: Female
  Weight: 119 kg

DRUGS (8)
  1. CELEBREX [Suspect]
     Indication: ARTHRALGIA
     Dosage: 200 MG, 1X/DAY
     Dates: start: 20130611, end: 20130616
  2. CELEBREX [Suspect]
     Indication: ARTHRITIS
  3. CELEBREX [Suspect]
     Indication: INFLAMMATION
  4. ETODOLAC [Suspect]
     Indication: ARTHRALGIA
     Dosage: 400 MG, 2X/DAY
     Dates: start: 20130526, end: 2013
  5. PROZAC [Suspect]
     Dosage: UNK
     Dates: start: 20130608, end: 2013
  6. PREDNISONE [Suspect]
     Indication: ARTHRALGIA
     Dosage: UNK, 4X/DAY
     Dates: start: 201305
  7. PREDNISONE [Suspect]
     Indication: CHEST PAIN
     Dosage: UNK, 3X/DAY
  8. PREDNISONE [Suspect]
     Indication: POLYMYALGIA RHEUMATICA
     Dosage: UNK,2X/DAY
     Dates: end: 2013

REACTIONS (9)
  - Transient global amnesia [Unknown]
  - Dizziness [Unknown]
  - Pain [Unknown]
  - Drug ineffective [Unknown]
  - Pain [Unknown]
  - Musculoskeletal stiffness [Unknown]
  - Arthralgia [Unknown]
  - Malaise [Unknown]
  - Arthropathy [Unknown]
